FAERS Safety Report 4841336-X (Version None)
Quarter: 2005Q4

REPORT INFORMATION
  Report Type: 
  Country: None (occurrence: None)
  Receive Date: 20051130
  Receipt Date: 20051123
  Transmission Date: 20060501
  Serious: Yes (Hospitalization, Other)
  Sender: FDA-Public Use
  Company Number: RU-GLAXOSMITHKLINE-B0401815A

PATIENT
  Age: 31 Month
  Sex: Female
  Weight: 16 kg

DRUGS (2)
  1. AUGMENTIN [Suspect]
     Dosage: 1260MG PER DAY
     Route: 048
     Dates: start: 20051005, end: 20051005
  2. NASIVIN [Concomitant]
     Route: 045

REACTIONS (4)
  - ABDOMINAL PAIN UPPER [None]
  - DYSPEPSIA [None]
  - INCORRECT DOSE ADMINISTERED [None]
  - VOMITING [None]
